FAERS Safety Report 5221680-7 (Version None)
Quarter: 2007Q1

REPORT INFORMATION
  Report Type: 
  Country: None (occurrence: None)
  Receive Date: 20070126
  Receipt Date: 20070126
  Transmission Date: 20070707
  Serious: Yes (Other)
  Sender: FDA-Public Use
  Company Number: None

PATIENT
  Age: 41 Year
  Sex: Female
  Weight: 74.8435 kg

DRUGS (12)
  1. FIORICET W/ CODEINE [Suspect]
     Indication: ANEURYSM
     Dosage: 1 CAPSULE   PRN   PO
     Route: 048
     Dates: start: 20020401, end: 20061231
  2. IMURAN [Concomitant]
  3. VASOTEC [Concomitant]
  4. ZELNORM [Concomitant]
  5. INDERAL [Concomitant]
  6. ASPIRIN [Concomitant]
  7. VYTORIN [Concomitant]
  8. LAMICTAL [Concomitant]
  9. LUPRON DEPOT-3 [Concomitant]
  10. FIOROCET WITH AND WITHOUT CODEINE [Concomitant]
  11. DARVOCET [Concomitant]
  12. AMBIEN [Concomitant]

REACTIONS (6)
  - ABDOMINAL PAIN UPPER [None]
  - BACK PAIN [None]
  - HEPATIC ENZYME INCREASED [None]
  - HYPERHIDROSIS [None]
  - PANCREATIC ENZYMES INCREASED [None]
  - VOMITING [None]
